FAERS Safety Report 5179194-9 (Version None)
Quarter: 2006Q4

REPORT INFORMATION
  Report Type: 
  Country: None (occurrence: None)
  Receive Date: 20061211
  Receipt Date: 20061201
  Transmission Date: 20070319
  Serious: Yes (Hospitalization)
  Sender: FDA-Public Use
  Company Number: 233169

PATIENT
  Sex: Female

DRUGS (1)
  1. XOLAIR [Suspect]
     Indication: DRUG USE FOR UNKNOWN INDICATION
     Dosage: 300 MG, SUBCUTANEOUS
     Route: 058
     Dates: start: 20061108

REACTIONS (6)
  - HEPATIC ENZYME INCREASED [None]
  - PLEURISY [None]
  - PNEUMONIA [None]
  - SINUSITIS [None]
  - THERAPY NON-RESPONDER [None]
  - VIRAL INFECTION [None]
